FAERS Safety Report 4676508-0 (Version None)
Quarter: 2005Q2

REPORT INFORMATION
  Report Type: 
  Country: None (occurrence: None)
  Receive Date: 20050527
  Receipt Date: 20050517
  Transmission Date: 20051028
  Serious: Yes (Other)
  Sender: FDA-Public Use
  Company Number: GB-JNJFOC-20050504946

PATIENT
  Age: 74 Year
  Sex: Female
  Weight: 50 kg

DRUGS (3)
  1. TRAMACET [Suspect]
     Indication: BACK PAIN
     Dosage: PRN.
     Route: 049
  2. CAPTOPRIL [Concomitant]
     Indication: BLOOD PRESSURE INCREASED
     Route: 049
  3. BENDROFLUAZIDE [Concomitant]
     Route: 049

REACTIONS (3)
  - GLOSSODYNIA [None]
  - SWELLING FACE [None]
  - SWOLLEN TONGUE [None]
